FAERS Safety Report 19378926 (Version 1)
Quarter: 2021Q2

REPORT INFORMATION
  Report Type: Spontaneous
  Country: CL (occurrence: CL)
  Receive Date: 20210606
  Receipt Date: 20210606
  Transmission Date: 20210717
  Serious: Yes (Death, Hospitalization)
  Sender: FDA-Public Use
  Company Number: CL-BAXTER-2021BAX014783

PATIENT
  Age: 75 Year
  Sex: Male

DRUGS (1)
  1. DIANEAL PD?2 PERITONEAL DIALYSIS SOLUTION WITH DEXTROSE [Suspect]
     Active Substance: CALCIUM CHLORIDE\DEXTROSE\MAGNESIUM CHLORIDE\SODIUM CHLORIDE\SODIUM LACTATE
     Indication: PERITONEAL DIALYSIS
     Dosage: 2 BAGS AT NIGHT
     Route: 033
     Dates: start: 2018, end: 20210520

REACTIONS (2)
  - Septic shock [Fatal]
  - Calciphylaxis [Unknown]

NARRATIVE: CASE EVENT DATE: 202105
